FAERS Safety Report 10349426 (Version 1)
Quarter: 2014Q3

REPORT INFORMATION
  Report Type: Spontaneous
  Country: US (occurrence: None)
  Receive Date: 20140728
  Receipt Date: 20140728
  Transmission Date: 20150326
  Serious: Yes (Hospitalization)
  Sender: FDA-Public Use
  Company Number: None

PATIENT
  Sex: Male

DRUGS (9)
  1. VOLTAREN XR [Concomitant]
     Active Substance: DICLOFENAC SODIUM
  2. MIRALAX [Concomitant]
     Active Substance: POLYETHYLENE GLYCOL 3350
  3. POT BICARB [Concomitant]
  4. AMLODIPINE [Concomitant]
     Active Substance: AMLODIPINE BESYLATE
  5. SPRYCEL [Suspect]
     Active Substance: DASATINIB
     Indication: CHRONIC MYELOID LEUKAEMIA
     Route: 048
  6. LASIX [Concomitant]
     Active Substance: FUROSEMIDE
  7. DIGOXIN. [Concomitant]
     Active Substance: DIGOXIN
  8. GLIPIZIDE. [Concomitant]
     Active Substance: GLIPIZIDE
  9. LISINOPRIL. [Concomitant]
     Active Substance: LISINOPRIL

REACTIONS (3)
  - Fluid retention [None]
  - Pulmonary oedema [None]
  - Electrocardiogram abnormal [None]
